FAERS Safety Report 21332196 (Version 1)
Quarter: 2022Q3

REPORT INFORMATION
  Report Type: Spontaneous
  Country: AU (occurrence: AU)
  Receive Date: 20220914
  Receipt Date: 20220914
  Transmission Date: 20221027
  Serious: Yes (Other)
  Sender: FDA-Public Use
  Company Number: AU-ALKEM LABORATORIES LIMITED-AU-ALKEM-2022-09367

PATIENT
  Age: 49 Year
  Sex: Female

DRUGS (9)
  1. FEXOFENADINE [Suspect]
     Active Substance: FEXOFENADINE HYDROCHLORIDE
     Indication: Product used for unknown indication
     Dosage: UNK
     Route: 065
  2. MORPHINE SULFATE [Suspect]
     Active Substance: MORPHINE SULFATE
     Indication: Product used for unknown indication
     Dosage: UNK
     Route: 065
  3. MYCOPHENOLATE MOFETIL [Suspect]
     Active Substance: MYCOPHENOLATE MOFETIL
     Indication: Product used for unknown indication
     Dosage: UNK
     Route: 065
  4. DEVICE [Suspect]
     Active Substance: DEVICE
     Indication: Product used for unknown indication
     Dosage: UNK
     Route: 065
  5. ENDEP [Suspect]
     Active Substance: AMITRIPTYLINE HYDROCHLORIDE
     Indication: Product used for unknown indication
     Dosage: UNK
     Route: 065
  6. LEFLUNOMIDE [Suspect]
     Active Substance: LEFLUNOMIDE
     Indication: Product used for unknown indication
     Dosage: UNK
     Route: 065
  7. METHOTREXATE [Suspect]
     Active Substance: METHOTREXATE
     Indication: Product used for unknown indication
     Dosage: UNK
     Route: 065
  8. PATANOL [Suspect]
     Active Substance: OLOPATADINE HYDROCHLORIDE
     Indication: Product used for unknown indication
     Dosage: UNK
     Route: 065
  9. HYDROXYCHLOROQUINE [Concomitant]
     Active Substance: HYDROXYCHLOROQUINE
     Indication: Product used for unknown indication
     Dosage: UNK
     Route: 065

REACTIONS (22)
  - Polyneuropathy [Unknown]
  - Urticarial vasculitis [Unknown]
  - Apathy [Unknown]
  - Arthralgia [Unknown]
  - Asthenia [Unknown]
  - Burning feet syndrome [Unknown]
  - Confusional state [Unknown]
  - Conjunctivitis [Unknown]
  - Dermatitis contact [Unknown]
  - Diarrhoea [Unknown]
  - Feeling abnormal [Unknown]
  - Haematuria [Unknown]
  - Hypertension [Unknown]
  - Hypohidrosis [Unknown]
  - Nausea [Unknown]
  - Pain [Unknown]
  - Paraesthesia [Unknown]
  - Pharyngeal swelling [Unknown]
  - Rhinorrhoea [Unknown]
  - Urticaria [Unknown]
  - Urticaria aquagenic [Unknown]
  - Urticaria cholinergic [Unknown]
